FAERS Safety Report 8524713-5 (Version None)
Quarter: 2012Q3

REPORT INFORMATION
  Report Type: 
  Country: None (occurrence: None)
  Receive Date: 20120720
  Receipt Date: 20120711
  Transmission Date: 20120928
  Serious: Yes (Hospitalization)
  Sender: FDA-Public Use
  Company Number: IT-ROCHE-1083933

PATIENT
  Sex: Male
  Weight: 70.5 kg

DRUGS (5)
  1. MABTHERA [Suspect]
     Indication: DIFFUSE LARGE B-CELL LYMPHOMA
     Dosage: MOST RECENT DOSE PRIOR TO SAE ON 22/JUN/2012: 2 MG/ML IN 325 ML
     Route: 042
     Dates: start: 20120308
  2. DOXORUBICIN HCL [Suspect]
     Indication: DIFFUSE LARGE B-CELL LYMPHOMA
     Dosage: MOST RECENT DOSE PRIOR TO SAE ON 22/JUN/2012
     Route: 042
     Dates: start: 20120308
  3. CYCLOPHOSPHAMIDE [Suspect]
     Indication: DIFFUSE LARGE B-CELL LYMPHOMA
     Dosage: MOST RECENT DOSE PRIOR TO SAE ON 22/JUN/2012: 980 MG
     Route: 042
     Dates: start: 20120308
  4. VINCRISTINE [Suspect]
     Indication: DIFFUSE LARGE B-CELL LYMPHOMA
     Dosage: MOST RECENT DOSE PRIOR TO SAE ON 22/JUN/2012: 1 MG
     Route: 040
     Dates: start: 20120308
  5. PREDNISONE [Suspect]
     Indication: DIFFUSE LARGE B-CELL LYMPHOMA
     Dosage: MOST RECENT DOSE PRIOR TO SAE ON 26/JUN/2012: 75 MG
     Dates: start: 20120308

REACTIONS (1)
  - NEUROLOGICAL SYMPTOM [None]
